FAERS Safety Report 17546087 (Version 1)
Quarter: 2020Q1

REPORT INFORMATION
  Report Type: Spontaneous
  Country: US (occurrence: US)
  Receive Date: 20200316
  Receipt Date: 20200316
  Transmission Date: 20200409
  Serious: Yes (Hospitalization)
  Sender: FDA-Public Use
  Company Number: US-GUERBET-US-20200059

PATIENT
  Sex: Female

DRUGS (1)
  1. DOTAREM [Suspect]
     Active Substance: GADOTERATE MEGLUMINE
     Indication: COMPUTERISED TOMOGRAM
     Route: 037
     Dates: start: 20200213, end: 20200213

REACTIONS (4)
  - Myocardial infarction [Recovered/Resolved]
  - Incorrect route of product administration [Recovered/Resolved]
  - Product use in unapproved indication [Recovered/Resolved]
  - Seizure [Recovered/Resolved]

NARRATIVE: CASE EVENT DATE: 20200213
